FAERS Safety Report 6472400-X (Version None)
Quarter: 2009Q4

REPORT INFORMATION
  Report Type: 
  Country: None (occurrence: None)
  Receive Date: 20091203
  Receipt Date: 20091123
  Transmission Date: 20100525
  Serious: Yes (Hospitalization, Disabling)
  Sender: FDA-Public Use
  Company Number: US-MERCK-0805USA04872

PATIENT
  Age: 44 Year
  Sex: Female

DRUGS (4)
  1. FOSAMAX [Suspect]
     Indication: OSTEOPOROSIS
     Route: 048
     Dates: start: 20030201, end: 20060201
  2. FOSAMAX [Suspect]
     Route: 048
     Dates: start: 20070401, end: 20080101
  3. FOSAMAX PLUS D [Suspect]
     Indication: OSTEOPOROSIS
     Route: 048
     Dates: start: 20060501, end: 20070201
  4. FOSAMAX PLUS D [Suspect]
     Route: 048
     Dates: end: 20080301

REACTIONS (11)
  - BREAST MASS [None]
  - GASTROOESOPHAGEAL REFLUX DISEASE [None]
  - HYPERCHOLESTEROLAEMIA [None]
  - HYPOTHYROIDISM [None]
  - JAW DISORDER [None]
  - LOOSE TOOTH [None]
  - MASTICATION DISORDER [None]
  - ORAL PAIN [None]
  - OSTEONECROSIS [None]
  - ROTATOR CUFF SYNDROME [None]
  - SINUSITIS [None]
